FAERS Safety Report 8270357-2 (Version None)
Quarter: 2012Q2

REPORT INFORMATION
  Report Type: 
  Country: None (occurrence: None)
  Receive Date: 20120410
  Receipt Date: 20120329
  Transmission Date: 20120825
  Serious: Yes (Other)
  Sender: FDA-Public Use
  Company Number: US-SANOFI-AVENTIS-2012SA010788

PATIENT
  Age: 71 Year
  Sex: Female
  Weight: 77.1 kg

DRUGS (7)
  1. ALDACTONE [Suspect]
     Dates: start: 20120126, end: 20120216
  2. PLAQUENIL [Suspect]
     Indication: COLLAGEN-VASCULAR DISEASE
     Dates: end: 20120226
  3. ATENOLOL [Concomitant]
  4. SYNTHROID [Concomitant]
  5. DILTIAZEM HCL [Concomitant]
  6. HYZAAR [Concomitant]
  7. COREG [Suspect]
     Dates: start: 20120103, end: 20120203

REACTIONS (4)
  - BLOOD PRESSURE INCREASED [None]
  - TACHYCARDIA [None]
  - MALAISE [None]
  - CHEST DISCOMFORT [None]
